FAERS Safety Report 15572058 (Version 1)
Quarter: 2018Q4

REPORT INFORMATION
  Report Type: Spontaneous
  Country: US (occurrence: US)
  Receive Date: 20181031
  Receipt Date: 20181031
  Transmission Date: 20190205
  Serious: Yes (Hospitalization)
  Sender: FDA-Public Use
  Company Number: US-EMMAUS MEDICAL, INC.-EMM201808-000508

PATIENT
  Sex: Female

DRUGS (6)
  1. FOLIC ACID. [Concomitant]
     Active Substance: FOLIC ACID
  2. NORVASC [Concomitant]
     Active Substance: AMLODIPINE BESYLATE
  3. ENDARI [Suspect]
     Active Substance: GLUTAMINE
     Indication: SICKLE CELL DISEASE
     Route: 048
  4. MORPHINE SULFATE. [Concomitant]
     Active Substance: MORPHINE SULFATE
  5. NEURONTIN [Concomitant]
     Active Substance: GABAPENTIN
  6. HYDROXYUREA. [Concomitant]
     Active Substance: HYDROXYUREA

REACTIONS (4)
  - Weight increased [Unknown]
  - Product dose omission [Unknown]
  - Adverse event [Unknown]
  - Increased appetite [Unknown]
